FAERS Safety Report 21167104 (Version 1)
Quarter: 2022Q3

REPORT INFORMATION
  Report Type: Spontaneous
  Country: SA (occurrence: SA)
  Receive Date: 20220803
  Receipt Date: 20220803
  Transmission Date: 20221027
  Serious: Yes (Death, Life-Threatening, Other)
  Sender: FDA-Public Use
  Company Number: SA-SLATE RUN PHARMACEUTICALS-22SA001239

PATIENT

DRUGS (3)
  1. VANCOMYCIN HYDROCHLORIDE [Suspect]
     Active Substance: VANCOMYCIN HYDROCHLORIDE
     Indication: Encephalitis
     Dosage: UNK
     Route: 042
  2. MEROPENEM [Concomitant]
     Active Substance: MEROPENEM
     Indication: Encephalitis
     Route: 042
  3. COLISTIN [Concomitant]
     Active Substance: COLISTIN
     Indication: Encephalitis
     Route: 042

REACTIONS (5)
  - Brain death [Fatal]
  - Klebsiella infection [Recovered/Resolved]
  - Septic shock [Not Recovered/Not Resolved]
  - Cardiac arrest [Not Recovered/Not Resolved]
  - Candida infection [Recovered/Resolved]
